FAERS Safety Report 8682736 (Version 2)
Quarter: 2013Q3

REPORT INFORMATION
  Report Type: Report from Study
  Country: MX (occurrence: MX)
  Receive Date: 20120725
  Receipt Date: 20130829
  Transmission Date: 20140515
  Serious: Yes (Hospitalization)
  Sender: FDA-Public Use
  Company Number: PHHY2012MX063579

PATIENT
  Age: 68 Year
  Sex: Female

DRUGS (5)
  1. ACLASTA [Suspect]
     Indication: OSTEOPOROSIS
     Dosage: 5 MG / 100 ML EACH YEAR
     Route: 042
     Dates: start: 200901
  2. ACLASTA [Suspect]
     Dosage: 5 MG / 100 ML EACH YEAR
     Route: 042
     Dates: start: 2011
  3. ATACAND [Concomitant]
     Indication: HYPERTENSION
     Dosage: 1 DF, UNK
     Dates: start: 200901
  4. EUTIROX [Concomitant]
     Indication: THYROID DISORDER
     Dosage: 1 DF, UNK
     Dates: start: 200801
  5. FOSAMAX [Concomitant]
     Indication: OSTEOPOROSIS
     Dosage: 3 DF, UNK
     Dates: start: 201202

REACTIONS (2)
  - Hip fracture [Recovered/Resolved]
  - Femur fracture [Recovered/Resolved]
